FAERS Safety Report 8268297-8 (Version None)
Quarter: 2012Q2

REPORT INFORMATION
  Report Type: 
  Country: None (occurrence: None)
  Receive Date: 20120409
  Receipt Date: 20120330
  Transmission Date: 20120825
  Serious: Yes (Hospitalization, Other)
  Sender: FDA-Public Use
  Company Number: PHHY2012DK027734

PATIENT
  Sex: Male

DRUGS (15)
  1. PREDNISONE TAB [Suspect]
     Dosage: UNK
  2. RITUXIMAB [Suspect]
     Dosage: 700 MG, UNK
     Route: 042
     Dates: start: 20120123
  3. VINCRISTINE [Suspect]
     Indication: MALIGNANT LYMPHOID NEOPLASM
     Dosage: 2 MG, UNK
     Route: 042
     Dates: start: 20110822
  4. NEUPOGEN [Suspect]
     Dosage: 6 MG, UNK
     Route: 042
     Dates: start: 20110906
  5. DOXORUBICIN HCL [Suspect]
     Dosage: 100 MG, UNK
     Route: 042
     Dates: start: 20110905
  6. RITUXIMAB [Suspect]
     Dosage: 800 MG, UNK
     Route: 042
     Dates: start: 20110905
  7. DOXORUBICIN HCL [Suspect]
     Indication: MALIGNANT LYMPHOID NEOPLASM
     Dosage: 100 MG, UNK
     Route: 042
     Dates: start: 20110822
  8. CYCLOPHOSPHAMIDE [Suspect]
     Indication: MALIGNANT LYMPHOID NEOPLASM
     Dosage: 1500 MG, UNK
     Route: 042
     Dates: start: 20110822
  9. WARFARIN SODIUM [Suspect]
     Indication: DEEP VEIN THROMBOSIS
     Dosage: 5 MG, UNK
     Route: 048
     Dates: start: 20111205
  10. NEUPOGEN [Suspect]
     Indication: MALIGNANT LYMPHOID NEOPLASM
     Dosage: 6 MG, UNK
     Route: 042
     Dates: start: 20110823
  11. PREDNISONE TAB [Suspect]
     Indication: INFLAMMATION
     Dosage: 500 MG, UNK
     Route: 048
     Dates: start: 20110822
  12. CYCLOPHOSPHAMIDE [Suspect]
     Dosage: 1500 MG, UNK
     Route: 042
     Dates: start: 20110905
  13. VINCRISTINE [Suspect]
     Dosage: 2 MG, UNK
     Route: 042
     Dates: start: 20110905
  14. PREDNISONE TAB [Suspect]
     Indication: MALIGNANT LYMPHOID NEOPLASM
     Dosage: 100 MG, UNK
     Route: 048
     Dates: start: 20110905
  15. RITUXIMAB [Suspect]
     Dosage: 500 MG, UNK
     Route: 042
     Dates: start: 20110822

REACTIONS (2)
  - PNEUMOTHORAX [None]
  - GASTRIC ULCER HAEMORRHAGE [None]
